FAERS Safety Report 12099711 (Version 3)
Quarter: 2016Q1

REPORT INFORMATION
  Report Type: Report from Study
  Country: US (occurrence: US)
  Receive Date: 20160222
  Receipt Date: 20160317
  Transmission Date: 20160526
  Serious: Yes (Other)
  Sender: FDA-Public Use
  Company Number: US-GILEAD-2016-0199580

PATIENT
  Age: 73 Year
  Sex: Female

DRUGS (4)
  1. DILTIAZEM [Concomitant]
     Active Substance: DILTIAZEM
  2. ATENOLOL. [Concomitant]
     Active Substance: ATENOLOL
  3. AMBRISENTAN [Suspect]
     Active Substance: AMBRISENTAN
     Indication: PRODUCT USED FOR UNKNOWN INDICATION
     Dosage: 5 MG, QD
     Route: 065
     Dates: start: 20151028
  4. TYVASO [Concomitant]
     Active Substance: TREPROSTINIL

REACTIONS (7)
  - Unevaluable event [Recovered/Resolved]
  - Dyspnoea [Recovering/Resolving]
  - Palpitations [Not Recovered/Not Resolved]
  - Unevaluable event [Not Recovered/Not Resolved]
  - Cough [Not Recovered/Not Resolved]
  - Hypotension [Not Recovered/Not Resolved]
  - Nasal congestion [Not Recovered/Not Resolved]

NARRATIVE: CASE EVENT DATE: 201602
